FAERS Safety Report 11935906 (Version 6)
Quarter: 2016Q2

REPORT INFORMATION
  Report Type: Report from Study
  Country: IL (occurrence: IL)
  Receive Date: 20160121
  Receipt Date: 20160610
  Transmission Date: 20160815
  Serious: Yes (Hospitalization, Other)
  Sender: FDA-Public Use
  Company Number: IL-BAYER-2015-489213

PATIENT
  Age: 37 Year
  Sex: Female
  Weight: 89 kg

DRUGS (10)
  1. IBUFEN [Concomitant]
     Dosage: 400 MG, AFTER BETAFERON INJECTION
  2. ULTRAVIST [Concomitant]
     Active Substance: IOPROMIDE
     Dosage: UNK UNK, ONCE
     Dates: start: 20160119, end: 20160119
  3. IRON [Concomitant]
     Active Substance: IRON
  4. VITAMIN B12 [Concomitant]
     Active Substance: CYANOCOBALAMIN
  5. VITAMIN D3 [Concomitant]
     Active Substance: CHOLECALCIFEROL
     Dosage: 400 UNIT, 6*1/DAY
  6. BETAFERON [Suspect]
     Active Substance: INTERFERON BETA-1B
     Indication: MULTIPLE SCLEROSIS
     Dosage: 0.3 MG, UNK
     Route: 058
     Dates: start: 20130523
  7. FESOTERODINE [Concomitant]
     Active Substance: FESOTERODINE
     Indication: URINARY INCONTINENCE
     Dosage: 4 MG, BID
  8. NEOTIGASON [Concomitant]
     Active Substance: ACITRETIN
     Indication: HYPERKERATOSIS
  9. ZYPREXA [Concomitant]
     Active Substance: OLANZAPINE
     Indication: SCHIZOPHRENIA
     Dosage: 10 MG, BID
  10. FERRIFOL [Concomitant]
     Dosage: 1 DF, QD

REACTIONS (4)
  - Myopia [Not Recovered/Not Resolved]
  - Mycosis fungoides [None]
  - Rash generalised [Recovering/Resolving]
  - Hypersensitivity [Recovering/Resolving]

NARRATIVE: CASE EVENT DATE: 201510
